FAERS Safety Report 4704050-7 (Version None)
Quarter: 2005Q2

REPORT INFORMATION
  Report Type: 
  Country: None (occurrence: None)
  Receive Date: 20050630
  Receipt Date: 20050620
  Transmission Date: 20051028
  Serious: Yes (Hospitalization)
  Sender: FDA-Public Use
  Company Number: HU-ROCHE-408401

PATIENT
  Age: 26 Year
  Sex: Female

DRUGS (1)
  1. ROACCUTAN [Suspect]
     Indication: ACNE
     Route: 048
     Dates: start: 20050404, end: 20050606

REACTIONS (4)
  - DEMYELINATION [None]
  - DYSGRAPHIA [None]
  - MULTIPLE SCLEROSIS [None]
  - SPEECH DISORDER [None]
